FAERS Safety Report 18943101 (Version 2)
Quarter: 2021Q2

REPORT INFORMATION
  Report Type: Report from Study
  Country: US (occurrence: US)
  Receive Date: 20210226
  Receipt Date: 20210402
  Transmission Date: 20210717
  Serious: Yes (Death, Other)
  Sender: FDA-Public Use
  Company Number: US-ACADIA PHARMACEUTICALS INC.-ACA-2021-PIM-000663

PATIENT
  Sex: Male

DRUGS (14)
  1. ZOLOFT [Concomitant]
     Active Substance: SERTRALINE HYDROCHLORIDE
  2. ATORVASTATIN [Concomitant]
     Active Substance: ATORVASTATIN
  3. LISINOPRIL. [Concomitant]
     Active Substance: LISINOPRIL
  4. WARFARIN [Concomitant]
     Active Substance: WARFARIN
  5. RIVASTIGMINE. [Concomitant]
     Active Substance: RIVASTIGMINE
  6. METFORMIN [Concomitant]
     Active Substance: METFORMIN HYDROCHLORIDE
  7. DEPAKOTE [Concomitant]
     Active Substance: DIVALPROEX SODIUM
  8. TRAMADOL. [Concomitant]
     Active Substance: TRAMADOL
  9. MEMANTINE HCL [Concomitant]
     Active Substance: MEMANTINE
  10. LEVOTHYROXINE. [Concomitant]
     Active Substance: LEVOTHYROXINE
  11. NUPLAZID [Suspect]
     Active Substance: PIMAVANSERIN TARTRATE
     Indication: PARKINSON^S DISEASE PSYCHOSIS
     Dosage: 34 MILLIGRAM, QD
     Route: 065
     Dates: end: 20210216
  12. NUPLAZID [Suspect]
     Active Substance: PIMAVANSERIN TARTRATE
     Indication: HALLUCINATION
  13. NUPLAZID [Suspect]
     Active Substance: PIMAVANSERIN TARTRATE
     Indication: DELUSION
  14. SINEMET [Concomitant]
     Active Substance: CARBIDOPA\LEVODOPA

REACTIONS (2)
  - Head injury [Recovered/Resolved]
  - Fall [Recovered/Resolved]
